FAERS Safety Report 18012710 (Version 2)
Quarter: 2020Q3

REPORT INFORMATION
  Report Type: Spontaneous
  Country: US (occurrence: US)
  Receive Date: 20200713
  Receipt Date: 20200902
  Transmission Date: 20201103
  Serious: Yes (Death, Other)
  Sender: FDA-Public Use
  Company Number: US-AMGEN-USASP2020111705

PATIENT
  Age: 87 Year
  Sex: Female

DRUGS (19)
  1. LOTRISONE [Concomitant]
     Active Substance: BETAMETHASONE DIPROPIONATE\CLOTRIMAZOLE
     Route: 061
  2. POTASSIUM [Concomitant]
     Active Substance: POTASSIUM
     Dosage: 99 MILLIGRAM
     Route: 048
  3. FLUTICASONE PROPIONATE. [Concomitant]
     Active Substance: FLUTICASONE PROPIONATE
     Dosage: 113 MICROGRAM
  4. METOPROLOL TARTRATE. [Concomitant]
     Active Substance: METOPROLOL TARTRATE
     Dosage: 50 MILLIGRAM
     Route: 048
  5. INFLUENZA [Concomitant]
     Active Substance: INFLUENZA VIRUS VACCINE
  6. FOLIC ACID. [Concomitant]
     Active Substance: FOLIC ACID
     Dosage: 400 MICROGRAM
     Route: 048
  7. LEVOTHYROXINE. [Concomitant]
     Active Substance: LEVOTHYROXINE
     Dosage: 125 MICROGRAM
     Route: 048
  8. TOLTERODINE [Concomitant]
     Active Substance: TOLTERODINE
     Dosage: 4 MILLIGRAM
     Route: 048
  9. ULORIC [Concomitant]
     Active Substance: FEBUXOSTAT
     Dosage: 40 MILLIGRAM
     Route: 048
  10. CLOBETASOL 0.05% [Concomitant]
     Active Substance: CLOBETASOL
  11. CALCIUM 600+D3 [Concomitant]
     Active Substance: CALCIUM CARBONATE\VITAMIN D
  12. ELIQUIS [Concomitant]
     Active Substance: APIXABAN
     Dosage: 2.5 MILLIGRAM
     Route: 048
  13. FUROSEMIDE. [Concomitant]
     Active Substance: FUROSEMIDE
     Dosage: 20 MILLIGRAM
     Route: 048
  14. OTEZLA [Suspect]
     Active Substance: APREMILAST
     Indication: PRODUCT USED FOR UNKNOWN INDICATION
     Dosage: 30 MILLIGRAM, (ONE 30 MG PILL IN THE AM, AND HALF TABLET EVERY NIGHT TOTAL, 45 MG)
     Route: 048
     Dates: start: 201808
  15. OTEZLA [Suspect]
     Active Substance: APREMILAST
     Dosage: 30 MILLIGRAM, QD (ONE 30 MG PILL IN THE AM)
     Route: 048
  16. OTEZLA [Suspect]
     Active Substance: APREMILAST
     Dosage: 30 MILLIGRAM (ONE 30 MG PILL IN THE AM, AND HALF TABLET EVERY NIGHT TOTAL, 45 MG)
     Route: 048
     Dates: end: 20200708
  17. CLOTRIMAZOLE AND BETAMETHASONE [Concomitant]
     Active Substance: BETAMETHASONE\CLOTRIMAZOLE
     Route: 061
  18. FLUOCINONIDE. [Concomitant]
     Active Substance: FLUOCINONIDE
     Dosage: UNK, BID (APPLY TO SCALP) (TOPICAL SOLUTION)
     Route: 061
  19. BENADRYL [Concomitant]
     Active Substance: DIPHENHYDRAMINE HYDROCHLORIDE
     Dosage: 25 MILLIGRAM
     Route: 048

REACTIONS (3)
  - Death [Fatal]
  - Off label use [Unknown]
  - Diarrhoea [Not Recovered/Not Resolved]

NARRATIVE: CASE EVENT DATE: 201808
